FAERS Safety Report 14734363 (Version 1)
Quarter: 2018Q2

REPORT INFORMATION
  Report Type: Spontaneous
  Country: CA (occurrence: CA)
  Receive Date: 20180409
  Receipt Date: 20180409
  Transmission Date: 20180711
  Serious: Yes (Death, Hospitalization, Other)
  Sender: FDA-Public Use
  Company Number: CA-PFIZER INC-2018143105

PATIENT
  Sex: Female

DRUGS (1)
  1. METHOTREXATE SODIUM. [Suspect]
     Active Substance: METHOTREXATE SODIUM
     Indication: RHEUMATOID ARTHRITIS
     Dosage: 2.5 MG TABLET, WEEKLY
     Dates: start: 2017

REACTIONS (8)
  - Liver injury [Unknown]
  - Mucosal discolouration [Unknown]
  - Dysuria [Unknown]
  - White blood cell count decreased [Unknown]
  - Death [Fatal]
  - Renal disorder [Unknown]
  - Myocardial infarction [Unknown]
  - Haemoglobin decreased [Unknown]

NARRATIVE: CASE EVENT DATE: 201802
